FAERS Safety Report 15007762 (Version 1)
Quarter: 2018Q2

REPORT INFORMATION
  Report Type: Spontaneous
  Country: MY (occurrence: MY)
  Receive Date: 20180613
  Receipt Date: 20180613
  Transmission Date: 20180711
  Serious: Yes (Other)
  Sender: FDA-Public Use
  Company Number: PHHY2018MY044105

PATIENT
  Age: 18 Year
  Sex: Female

DRUGS (2)
  1. GILENYA [Suspect]
     Active Substance: FINGOLIMOD HYDROCHLORIDE
     Indication: RELAPSING-REMITTING MULTIPLE SCLEROSIS
     Dosage: 10 MG, QD
     Route: 048
     Dates: start: 20161112, end: 20180302
  2. DOXYCYCLINE. [Concomitant]
     Active Substance: DOXYCYCLINE
     Indication: ACNE
     Dosage: 100 MG, QD
     Route: 065
     Dates: end: 201712

REACTIONS (5)
  - Lymphocyte count decreased [Recovering/Resolving]
  - Dyspnoea [Recovered/Resolved]
  - Cyanosis [Recovering/Resolving]
  - Skin discolouration [Recovering/Resolving]
  - Choking [Recovering/Resolving]

NARRATIVE: CASE EVENT DATE: 20180302
